FAERS Safety Report 22815489 (Version 2)
Quarter: 2023Q4

REPORT INFORMATION
  Report Type: Spontaneous
  Country: FR (occurrence: FR)
  Receive Date: 20230811
  Receipt Date: 20231016
  Transmission Date: 20240109
  Serious: Yes (Hospitalization)
  Sender: FDA-Public Use
  Company Number: FR-AFSSAPS-CN2023000401

PATIENT
  Age: 83 Year
  Sex: Male

DRUGS (6)
  1. VENLAFAXINE [Suspect]
     Active Substance: VENLAFAXINE HYDROCHLORIDE
     Indication: Depression
     Dosage: 75 MILLIGRAM, DAILY
     Route: 048
     Dates: start: 20230207, end: 20230403
  2. ASPIRIN [Suspect]
     Active Substance: ASPIRIN
     Indication: Cardiovascular event prophylaxis
     Dosage: 100 MILLIGRAM, DAILY
     Route: 048
     Dates: start: 2022, end: 20230403
  3. HALDOL [Interacting]
     Active Substance: HALOPERIDOL
     Indication: Behaviour disorder
     Dosage: 2.1 MILLIGRAM, DAILY
     Route: 048
     Dates: start: 20230125, end: 20230403
  4. MIANSERIN HYDROCHLORIDE [Suspect]
     Active Substance: MIANSERIN HYDROCHLORIDE
     Indication: Depression
     Dosage: 60 MILLIGRAM, DAILY
     Route: 048
     Dates: start: 2022, end: 20230403
  5. AMOXICILLIN / CLAVULANIC ACID  MYLAN [Concomitant]
     Indication: Lung disorder
     Dosage: 1000 MILLIGRAM, TID
     Route: 048
     Dates: start: 20230313, end: 20230322
  6. CEFTRIAXONE SODIUM [Concomitant]
     Active Substance: CEFTRIAXONE SODIUM
     Indication: Lung disorder
     Dosage: 1000 MILLIGRAM, DAILY
     Route: 040
     Dates: start: 20230322, end: 20230401

REACTIONS (2)
  - Hepatic failure [Not Recovered/Not Resolved]
  - Hepatocellular injury [Not Recovered/Not Resolved]

NARRATIVE: CASE EVENT DATE: 20230403
